FAERS Safety Report 6540075-7 (Version None)
Quarter: 2010Q1

REPORT INFORMATION
  Report Type: 
  Country: None (occurrence: None)
  Receive Date: 20100115
  Receipt Date: 20100114
  Transmission Date: 20100710
  Serious: Yes (Hospitalization, Other)
  Sender: FDA-Public Use
  Company Number: GB-ROXANE LABORATORIES, INC.-2010-RO-00030RO

PATIENT
  Age: 78 Year
  Sex: Female

DRUGS (10)
  1. DIGOXIN [Suspect]
  2. AMLODIPINE [Suspect]
  3. FUROSEMIDE [Suspect]
  4. LISINOPRIL [Suspect]
  5. SPIRONOLACTONE [Suspect]
  6. WARFARIN [Suspect]
  7. LANSOPRAZOLE [Suspect]
  8. QUININE SULFATE [Suspect]
  9. ATROPINE [Suspect]
  10. DIGIBIND [Suspect]
     Indication: THERAPEUTIC AGENT TOXICITY

REACTIONS (12)
  - ATRIAL FIBRILLATION [None]
  - DEHYDRATION [None]
  - FIBULA FRACTURE [None]
  - HYPERKALAEMIA [None]
  - HYPONATRAEMIA [None]
  - LOSS OF CONSCIOUSNESS [None]
  - LOWER RESPIRATORY TRACT INFECTION [None]
  - NORMOCHROMIC NORMOCYTIC ANAEMIA [None]
  - RENAL FAILURE ACUTE [None]
  - SYNCOPE [None]
  - THERAPEUTIC AGENT TOXICITY [None]
  - TIBIA FRACTURE [None]
